FAERS Safety Report 10512181 (Version 1)
Quarter: 2014Q4

REPORT INFORMATION
  Report Type: Spontaneous
  Country: JP (occurrence: JP)
  Receive Date: 20141010
  Receipt Date: 20141010
  Transmission Date: 20150528
  Serious: Yes (Other)
  Sender: FDA-Public Use
  Company Number: JP-BRISTOL-MYERS SQUIBB COMPANY-21470786

PATIENT
  Age: 65 Year
  Sex: Male

DRUGS (5)
  1. BEZAFIBRATE [Concomitant]
     Active Substance: BEZAFIBRATE
  2. METGLUCO [Suspect]
     Active Substance: METFORMIN HYDROCHLORIDE
     Indication: DIABETES MELLITUS
     Dosage: 1DF:250 MG TABS?JUL2014:500 MG TABS:2/D
     Route: 048
     Dates: start: 201405
  3. LOSARTAN [Concomitant]
     Active Substance: LOSARTAN
  4. VILDAGLIPTIN [Concomitant]
     Active Substance: VILDAGLIPTIN
  5. DOGMATYL [Suspect]
     Active Substance: SULPIRIDE
     Dates: start: 201407

REACTIONS (1)
  - Ageusia [Recovering/Resolving]

NARRATIVE: CASE EVENT DATE: 20140813
